FAERS Safety Report 4484406-0 (Version None)
Quarter: 2004Q4

REPORT INFORMATION
  Report Type: 
  Country: None (occurrence: None)
  Receive Date: 20041025
  Receipt Date: 20031010
  Transmission Date: 20050328
  Serious: Yes (Hospitalization)
  Sender: FDA-Public Use
  Company Number: PHBS2003CH11264

PATIENT
  Age: 68 Year
  Sex: Female

DRUGS (8)
  1. TEGRETOL [Suspect]
     Indication: PSYCHOTIC DISORDER
     Dosage: 400 MG, BID
     Route: 048
  2. TEGRETOL [Suspect]
     Dosage: 400 MG, BID
     Route: 048
     Dates: end: 20030703
  3. PRIADEL [Suspect]
     Indication: BIPOLAR DISORDER
     Dosage: 200 MG, BID
  4. PRIADEL [Suspect]
     Dosage: 200 MG, BID
     Route: 065
     Dates: end: 20030703
  5. VIOXX [Suspect]
     Indication: PAIN IN EXTREMITY
     Dosage: 25 MG, BID
     Route: 065
     Dates: start: 20030625, end: 20030702
  6. DIPIPERON [Concomitant]
     Indication: PSYCHOTIC DISORDER
     Dosage: 60 MG/DAY
     Route: 065
  7. MIRTAZAPINE [Concomitant]
     Indication: PSYCHOTIC DISORDER
     Dosage: 30 MG/DAY
     Route: 065
  8. IMOVANE [Concomitant]
     Indication: SLEEP DISORDER
     Route: 065

REACTIONS (26)
  - ATRIOVENTRICULAR BLOCK COMPLETE [None]
  - BLOOD CREATININE INCREASED [None]
  - CHILLS [None]
  - CREATININE RENAL CLEARANCE DECREASED [None]
  - DRUG LEVEL INCREASED [None]
  - DYSARTHRIA [None]
  - ELECTROCARDIOGRAM T WAVE INVERSION [None]
  - EXTRAPYRAMIDAL DISORDER [None]
  - FALL [None]
  - HEADACHE [None]
  - HYPOKINESIA [None]
  - HYPOTENSION [None]
  - KYPHOSIS [None]
  - LORDOSIS [None]
  - MALAISE [None]
  - MYALGIA [None]
  - NAUSEA [None]
  - OSTEOCHONDROSIS [None]
  - PAIN IN EXTREMITY [None]
  - PANCYTOPENIA [None]
  - RENAL IMPAIRMENT [None]
  - SINUS ARREST [None]
  - SINUS BRADYCARDIA [None]
  - SOMNOLENCE [None]
  - TREMOR [None]
  - VOMITING [None]
